FAERS Safety Report 8832621 (Version 2)
Quarter: 2012Q4

REPORT INFORMATION
  Report Type: 
  Country: US (occurrence: US)
  Receive Date: 20121010
  Receipt Date: 20121105
  Transmission Date: 20130627
  Serious: No
  Sender: FDA-Public Use
  Company Number: US-PFIZER INC-2012248709

PATIENT
  Sex: Male

DRUGS (1)
  1. ZYVOX [Suspect]
     Indication: METHICILLIN-RESISTANT STAPHYLOCOCCAL AUREUS INFECTION
     Dosage: UNK

REACTIONS (3)
  - Toe operation [Unknown]
  - Pyrexia [Unknown]
  - Localised infection [Unknown]
